FAERS Safety Report 4363804-X (Version None)
Quarter: 2004Q2

REPORT INFORMATION
  Report Type: 
  Country: None (occurrence: None)
  Receive Date: 20040521
  Receipt Date: 20040510
  Transmission Date: 20050107
  Serious: Yes (Hospitalization, Other)
  Sender: FDA-Public Use
  Company Number: 2004206101JP

PATIENT
  Age: 50 Year
  Sex: Female
  Weight: 53 kg

DRUGS (5)
  1. PROVERA [Suspect]
     Indication: HORMONE REPLACEMENT THERAPY
     Dosage: SEE IMAGE
     Route: 048
     Dates: start: 19960531, end: 19991125
  2. PROVERA [Suspect]
     Indication: HORMONE REPLACEMENT THERAPY
     Dosage: SEE IMAGE
     Route: 048
     Dates: start: 19960531, end: 20010111
  3. PROVERA [Suspect]
     Indication: HORMONE REPLACEMENT THERAPY
     Dosage: SEE IMAGE
     Route: 048
     Dates: start: 19991126
  4. PREMARIN [Suspect]
     Indication: HORMONE REPLACEMENT THERAPY
     Dosage: 0.3125 MG, QD, ORAL
     Route: 048
     Dates: start: 20010112
  5. PREDONINE [Concomitant]

REACTIONS (1)
  - BREAST CANCER STAGE I [None]
